FAERS Safety Report 5123190-4 (Version None)
Quarter: 2006Q4

REPORT INFORMATION
  Report Type: 
  Country: None (occurrence: None)
  Receive Date: 20061005
  Receipt Date: 20060925
  Transmission Date: 20070319
  Serious: Yes (Hospitalization, Other)
  Sender: FDA-Public Use
  Company Number: 2006098925

PATIENT
  Age: 52 Year
  Sex: Male
  Weight: 74.3899 kg

DRUGS (18)
  1. MINOXIDIL [Suspect]
     Indication: HYPERTENSION
     Dosage: 2.5 MG (2.5 MG, 1 IN 1 D)
  2. PROCRIT [Suspect]
     Indication: NEPHROGENIC ANAEMIA
     Dosage: 20000 I.U., 3 IN 1 WK; 80000 I.U., 1 IN 1 WK
     Dates: end: 20060626
  3. PROCRIT [Suspect]
     Indication: NEPHROGENIC ANAEMIA
     Dosage: 20000 I.U., 3 IN 1 WK; 80000 I.U., 1 IN 1 WK
     Dates: start: 20060401
  4. ALLOPURINOL [Suspect]
     Indication: GOUT
     Dosage: 100 MG (100 MG, 1 IN 1 D)
     Dates: start: 20050330
  5. MYCOPHENOLIC ACID [Suspect]
     Dates: start: 20011112
  6. CELLCEPT [Concomitant]
  7. PREDNISONE TAB [Concomitant]
  8. LIPITOR [Concomitant]
  9. ATENOLOL [Concomitant]
  10. SYNTHROID [Concomitant]
  11. LANTUS [Concomitant]
  12. ASPIRIN [Concomitant]
  13. LASIX [Concomitant]
  14. COLCHICUM JTL LIQ [Concomitant]
  15. PLENDIL [Concomitant]
  16. SODIUM BICARBONATE IN PLASTIC CONTAINER [Concomitant]
  17. AMBIEN [Concomitant]
  18. COUMADIN [Concomitant]

REACTIONS (8)
  - APLASIA PURE RED CELL [None]
  - COELIAC DISEASE [None]
  - DIARRHOEA [None]
  - FACIAL WASTING [None]
  - FATIGUE [None]
  - FLUID OVERLOAD [None]
  - HAEMOLYSIS [None]
  - OEDEMA PERIPHERAL [None]
